FAERS Safety Report 5442441-X (Version None)
Quarter: 2007Q3

REPORT INFORMATION
  Report Type: 
  Country: None (occurrence: None)
  Receive Date: 20070904
  Receipt Date: 20070823
  Transmission Date: 20080115
  Serious: Yes (Other)
  Sender: FDA-Public Use
  Company Number: US-PFIZER INC-2007071099

PATIENT
  Sex: Female
  Weight: 63.5 kg

DRUGS (3)
  1. XALATAN [Suspect]
     Indication: OCULAR VASCULAR DISORDER
  2. MICARDIS [Concomitant]
  3. NEXIUM [Concomitant]

REACTIONS (2)
  - EYE PAIN [None]
  - INTRAOCULAR PRESSURE INCREASED [None]
